APPROVED DRUG PRODUCT: WYTENSIN
Active Ingredient: GUANABENZ ACETATE
Strength: EQ 8MG BASE
Dosage Form/Route: TABLET;ORAL
Application: N018587 | Product #002
Applicant: WYETH AYERST LABORATORIES
Approved: Sep 7, 1982 | RLD: No | RS: No | Type: DISCN